FAERS Safety Report 9457679 (Version 1)
Quarter: 2013Q3

REPORT INFORMATION
  Report Type: Spontaneous
  Country: US (occurrence: US)
  Receive Date: 20130814
  Receipt Date: 20130814
  Transmission Date: 20140515
  Serious: Yes (Hospitalization)
  Sender: FDA-Public Use
  Company Number: US-BAYER-2013-097077

PATIENT
  Age: 36 Year
  Sex: Female
  Weight: 133.4 kg

DRUGS (9)
  1. YASMIN [Suspect]
  2. METFORMIN [Concomitant]
     Dosage: 500 MG, BID
     Route: 048
  3. OMEPRAZOLE [Concomitant]
     Dosage: 20 MG, BID
  4. FLAGYL [Concomitant]
  5. CEFTRIAXONE [Concomitant]
  6. HYDRALAZINE [Concomitant]
  7. NORVASC [Concomitant]
  8. PHOSLO [Concomitant]
  9. VANCOMYCIN [Concomitant]

REACTIONS (3)
  - Cholelithiasis [None]
  - Pulmonary embolism [None]
  - Atrial thrombosis [None]
